FAERS Safety Report 9109467 (Version 1)
Quarter: 2013Q1

REPORT INFORMATION
  Report Type: Report from Study
  Country: US (occurrence: US)
  Receive Date: 20130222
  Receipt Date: 20130222
  Transmission Date: 20140127
  Serious: Yes (Other)
  Sender: FDA-Public Use
  Company Number: US-JNJFOC-20121101704

PATIENT
  Age: 52 None
  Sex: Female
  Weight: 74.84 kg

DRUGS (16)
  1. REMICADE [Suspect]
     Indication: CROHN^S DISEASE
     Route: 042
     Dates: start: 20120820
  2. REMICADE [Suspect]
     Indication: CROHN^S DISEASE
     Dosage: TOTAL NUMBER OF INFUSIONS RECEIVED BY THE PATIENT: 2
     Route: 042
     Dates: start: 20120905, end: 20120905
  3. VIVELLE-DOT [Concomitant]
     Indication: HORMONE THERAPY
     Dosage: DOSE, 0.1 MG/24 HRS
     Route: 062
  4. FISH OIL [Concomitant]
     Indication: BLOOD CHOLESTEROL INCREASED
     Route: 065
  5. LISINOPRIL [Concomitant]
     Indication: HYPERTENSION
     Route: 048
  6. ATORVASTATIN [Concomitant]
     Indication: BLOOD CHOLESTEROL INCREASED
     Route: 048
  7. ALENDRONATE [Concomitant]
     Indication: OSTEOPENIA
     Route: 048
  8. CITALOPRAM [Concomitant]
     Indication: CROHN^S DISEASE
     Route: 048
  9. LANSOPRAZOLE [Concomitant]
     Indication: CROHN^S DISEASE
     Route: 065
  10. LEVOTHYROXINE [Concomitant]
     Indication: THYROID DISORDER
     Route: 048
  11. TRAMADOL [Concomitant]
     Indication: PAIN
     Dosage: ONCE EVERY 4 HRS AS NECESSARY
     Route: 065
  12. ZOFRAN [Concomitant]
     Indication: NAUSEA
     Dosage: ONCE EVERY 8 HRS AS REQUIRED
     Route: 065
  13. TYLENOL [Concomitant]
     Indication: PREMEDICATION
     Route: 048
     Dates: start: 20120820
  14. TYLENOL [Concomitant]
     Indication: PREMEDICATION
     Route: 048
     Dates: start: 20120905
  15. LORATADINE [Concomitant]
     Indication: PREMEDICATION
     Route: 048
     Dates: start: 20120820
  16. LORATADINE [Concomitant]
     Indication: PREMEDICATION
     Route: 048
     Dates: start: 20120905

REACTIONS (9)
  - Agitation [Recovered/Resolved]
  - Restlessness [Recovered/Resolved]
  - Hypertension [Recovered/Resolved]
  - Headache [Recovered/Resolved]
  - Flushing [Recovered/Resolved]
  - Rash [Recovered/Resolved]
  - Back pain [Recovered/Resolved]
  - Infusion related reaction [Recovered/Resolved]
  - Anxiety [None]
